FAERS Safety Report 12578724 (Version 1)
Quarter: 2016Q3

REPORT INFORMATION
  Report Type: Spontaneous
  Country: US (occurrence: US)
  Receive Date: 20160721
  Receipt Date: 20160721
  Transmission Date: 20161109
  Serious: Yes (Other)
  Sender: FDA-Public Use
  Company Number: US-TEVA-650918USA

PATIENT
  Sex: Male
  Weight: 118.04 kg

DRUGS (2)
  1. BICALUTAMIDE. [Suspect]
     Active Substance: BICALUTAMIDE
     Route: 065
     Dates: start: 201504, end: 201601
  2. FINASTERIDE. [Concomitant]
     Active Substance: FINASTERIDE

REACTIONS (17)
  - Depression [Not Recovered/Not Resolved]
  - Blood testosterone decreased [Unknown]
  - Abdominal distension [Not Recovered/Not Resolved]
  - Dyspnoea [Unknown]
  - Testicular pain [Not Recovered/Not Resolved]
  - Weight increased [Not Recovered/Not Resolved]
  - Fluid retention [Unknown]
  - Joint crepitation [Unknown]
  - Pain [Not Recovered/Not Resolved]
  - Poor peripheral circulation [Unknown]
  - Gastric dilatation [Unknown]
  - Gynaecomastia [Not Recovered/Not Resolved]
  - Peripheral coldness [Unknown]
  - Abdominal hernia [Not Recovered/Not Resolved]
  - Circadian rhythm sleep disorder [Not Recovered/Not Resolved]
  - Crying [Unknown]
  - Incorrect dose administered [Unknown]
